FAERS Safety Report 6644615-9 (Version None)
Quarter: 2010Q1

REPORT INFORMATION
  Report Type: 
  Country: None (occurrence: None)
  Receive Date: 20100318
  Receipt Date: 20100318
  Transmission Date: 20100710
  Serious: Yes (Hospitalization)
  Sender: FDA-Public Use
  Company Number: None

PATIENT
  Age: 83 Year
  Sex: Male
  Weight: 90.4 kg

DRUGS (1)
  1. COLCHICINE [Suspect]
     Indication: DIARRHOEA
     Dosage: 0.6 MG PRN PO
     Route: 048
     Dates: start: 20100224, end: 20100226

REACTIONS (2)
  - DIARRHOEA [None]
  - INCONTINENCE [None]
